FAERS Safety Report 15402929 (Version 2)
Quarter: 2019Q3

REPORT INFORMATION
  Report Type: Report from Study
  Country: US (occurrence: US)
  Receive Date: 20180919
  Receipt Date: 20190823
  Transmission Date: 20191004
  Serious: Yes (Other)
  Sender: FDA-Public Use
  Company Number: PHEH2018US038332

PATIENT
  Sex: Male

DRUGS (2)
  1. PROMACTA [Suspect]
     Active Substance: ELTROMBOPAG OLAMINE
     Indication: PRODUCT USED FOR UNKNOWN INDICATION
     Dosage: 2 DF, QD
     Route: 065
  2. PROMACTA [Interacting]
     Active Substance: ELTROMBOPAG OLAMINE
     Dosage: 3 DF, QD
     Route: 065

REACTIONS (4)
  - Drug ineffective [Unknown]
  - Injury [Unknown]
  - Lymphoma [Unknown]
  - Platelet count increased [Unknown]
